FAERS Safety Report 20981994 (Version 1)
Quarter: 2022Q2

REPORT INFORMATION
  Report Type: Other
  Country: JP (occurrence: JP)
  Receive Date: 20220620
  Receipt Date: 20220620
  Transmission Date: 20220721
  Serious: Yes (Death, Hospitalization)
  Sender: FDA-Public Use
  Company Number: JP-UPSHER-SMITH LABORATORIES, LLC-2022USL00178

PATIENT
  Age: 69 Year
  Sex: Male
  Weight: 45 kg

DRUGS (18)
  1. AMIODARONE HYDROCHLORIDE [Suspect]
     Active Substance: AMIODARONE HYDROCHLORIDE
     Indication: Ventricular tachycardia
     Dosage: 200 MG/DAY
     Route: 048
     Dates: start: 20181022, end: 20220216
  2. XARELTO [Suspect]
     Active Substance: RIVAROXABAN
     Dosage: UNK
     Dates: start: 20210612, end: 2022
  3. ARDUCTON A [Concomitant]
  4. CARVEDILOL [Concomitant]
     Active Substance: CARVEDILOL
  5. PIMOBENDAN [Concomitant]
     Active Substance: PIMOBENDAN
  6. TRADIANCE COMBINATION BP [Concomitant]
  7. SAMSUKA OD TABLETS [Concomitant]
  8. RABEPRAZOLE SODIUM [Concomitant]
     Active Substance: RABEPRAZOLE SODIUM
  9. FEBUXOSTAT [Concomitant]
     Active Substance: FEBUXOSTAT
  10. SODIUM FERROUS CITRATE [Concomitant]
     Active Substance: SODIUM FERROUS CITRATE
  11. NAFTOPIDIL [Concomitant]
     Active Substance: NAFTOPIDIL
  12. DISTIGMINE BROMIDE [Concomitant]
     Active Substance: DISTIGMINE BROMIDE
  13. CALCIUM CARBONATE\CHOLECALCIFEROL\MAGNESIUM CARBONATE [Concomitant]
     Active Substance: CALCIUM CARBONATE\CHOLECALCIFEROL\MAGNESIUM CARBONATE
  14. ZOLPIDEM TARTRATE [Concomitant]
     Active Substance: ZOLPIDEM TARTRATE
  15. ELOBIXIBAT [Concomitant]
     Active Substance: ELOBIXIBAT
  16. DEPAS [Concomitant]
  17. LOXOPROFEN SODIUM DIHYDRATE [Concomitant]
     Active Substance: LOXOPROFEN SODIUM DIHYDRATE
  18. PHENYLEPHRINE HYDROCHLORIDE\TROPICAMIDE [Concomitant]
     Active Substance: PHENYLEPHRINE HYDROCHLORIDE\TROPICAMIDE

REACTIONS (3)
  - Cardiomyopathy [Fatal]
  - Interstitial lung disease [Fatal]
  - Cardiac failure [Unknown]

NARRATIVE: CASE EVENT DATE: 20220216
